FAERS Safety Report 9549442 (Version 1)
Quarter: 2013Q3

REPORT INFORMATION
  Report Type: Spontaneous
  Country: IN (occurrence: None)
  Receive Date: 20130919
  Receipt Date: 20130919
  Transmission Date: 20140515
  Serious: Yes (Hospitalization)
  Sender: FDA-Public Use
  Company Number: SYM-2013-10756

PATIENT
  Age: 43 Year
  Sex: Male

DRUGS (6)
  1. 5 FU [Suspect]
     Indication: COLORECTAL CANCER METASTATIC
     Dosage: 24 MG/M2, EVERY OTHER WEEK, INTRAVENOUS (NOT OTHERWISE SPECIFIED)?
     Route: 042
     Dates: start: 20130828, end: 20130828
  2. ZALTRAP [Suspect]
     Indication: COLORECTAL CANCER METASTATIC
     Dosage: 4 MG/KG, EVERY OTHER WEEK, INTRAVENOUS (NOT OTHERWISE SPECIFIED)
     Route: 042
     Dates: start: 20130828, end: 20130828
  3. IRINOTECAN [Suspect]
     Indication: COLORECTAL CANCER METASTATIC
     Dosage: 180 MG/M2, EVERY OTHER WEEK, INTRAVENOUS (NOT OTHERWISE SPECIFIED)
     Route: 042
     Dates: start: 20130828, end: 20130828
  4. LEUCOVORIN (FOLINIC ACID) (SOLUTION FOR INFUSION) (FOLINIC ACID) [Suspect]
     Indication: COLORECTAL CANCER METASTATIC
     Dosage: 350 MG, EVERY OTHER WEEK, INTRAVENOUS (NOT OTHERWISE SPECIFIED)?
     Route: 042
     Dates: start: 20130828, end: 20130828
  5. AUGMENTIN (AUGMENTIN/00756801/) (AMOXICILLIN SODIUM, CLAVULANATE POTASSIUM) [Concomitant]
  6. CIPLOX (CIPROFLOXACIN HYDROCHLORIDE) (CIPROFLOXACIN HYDROCHLORIDE0 [Concomitant]

REACTIONS (4)
  - Oral candidiasis [None]
  - Hiccups [None]
  - Mucosal inflammation [None]
  - Pyrexia [None]
